FAERS Safety Report 24779474 (Version 1)
Quarter: 2024Q4

REPORT INFORMATION
  Report Type: Spontaneous
  Country: CN (occurrence: CN)
  Receive Date: 20241226
  Receipt Date: 20241226
  Transmission Date: 20250115
  Serious: Yes (Hospitalization, Other)
  Sender: MERCK
  Company Number: CN-009507513-2412CHN008499

PATIENT
  Age: 58 Year
  Sex: Female
  Weight: 57 kg

DRUGS (1)
  1. CILASTATIN SODIUM\IMIPENEM [Suspect]
     Active Substance: CILASTATIN SODIUM\IMIPENEM
     Indication: Anti-infective therapy
     Dosage: 2 G, TID
     Route: 041
     Dates: start: 20241217, end: 20241218

REACTIONS (7)
  - Seizure [Recovered/Resolved]
  - Seizure [Recovered/Resolved]
  - Chronic kidney disease [Unknown]
  - Azotaemia [Unknown]
  - Cardiac failure congestive [Unknown]
  - Sepsis [Unknown]
  - Overdose [Unknown]

NARRATIVE: CASE EVENT DATE: 20241201
